FAERS Safety Report 10102017 (Version 1)
Quarter: 2014Q2

REPORT INFORMATION
  Report Type: Spontaneous
  Country: US (occurrence: None)
  Receive Date: 20140422
  Receipt Date: 20140422
  Transmission Date: 20141212
  Serious: Yes (Hospitalization)
  Sender: FDA-Public Use
  Company Number: AUR-APL-2014-04784

PATIENT
  Age: 44 Year
  Sex: Female

DRUGS (2)
  1. ALPRAZOLAM [Suspect]
     Indication: PRODUCT USED FOR UNKNOWN INDICATION
  2. K-DUR [Suspect]
     Indication: BLOOD POTASSIUM DECREASED

REACTIONS (7)
  - Blood pressure decreased [None]
  - Electrocardiogram T wave peaked [None]
  - Bezoar [None]
  - Aggression [None]
  - Mental status changes [None]
  - Intentional overdose [None]
  - Hyperkalaemia [None]
